FAERS Safety Report 11148901 (Version 1)
Quarter: 2015Q2

REPORT INFORMATION
  Report Type: Spontaneous
  Country: US (occurrence: US)
  Receive Date: 20150529
  Receipt Date: 20150529
  Transmission Date: 20150821
  Serious: Yes (Death)
  Sender: FDA-Public Use
  Company Number: US-PFIZER INC-2015179086

PATIENT
  Age: 22 Year
  Sex: Male

DRUGS (19)
  1. METOPROLOL [Concomitant]
     Active Substance: METOPROLOL
  2. METRONIDAZOLE. [Suspect]
     Active Substance: METRONIDAZOLE
     Indication: SEPTIC SHOCK
     Dosage: 500 MG, 3X/DAY
  3. ASPIRIN /00002701/ [Concomitant]
     Active Substance: ASPIRIN
  4. METRONIDAZOLE. [Suspect]
     Active Substance: METRONIDAZOLE
     Indication: ANTIBIOTIC PROPHYLAXIS
  5. CEFOXITIN [Suspect]
     Active Substance: CEFOXITIN\CEFOXITIN SODIUM
     Indication: ANTIBIOTIC PROPHYLAXIS
     Dosage: 1 G, UNK
  6. EPOETIN ALFA [Concomitant]
     Active Substance: ERYTHROPOIETIN
  7. LANSOPRAZOLE. [Concomitant]
     Active Substance: LANSOPRAZOLE
  8. TIGECYCLINE [Suspect]
     Active Substance: TIGECYCLINE
     Indication: ACINETOBACTER INFECTION
  9. CEFAZOLIN /00288502/ [Suspect]
     Active Substance: CEFAZOLIN SODIUM
     Indication: STAPHYLOCOCCAL INFECTION
     Dosage: 1 G, 2X/DAY
  10. NOREPINEPHRINE [Concomitant]
     Active Substance: NOREPINEPHRINE\NOREPINEPHRINE BITARTRATE
  11. IMIPENEM [Concomitant]
     Active Substance: IMIPENEM
     Dosage: 250 MG, 4X/DAY
  12. TIGECYCLINE [Suspect]
     Active Substance: TIGECYCLINE
     Indication: ESCHERICHIA INFECTION
     Dosage: 50 MG, 2X/DAY
  13. DEXAMETHASONE. [Concomitant]
     Active Substance: DEXAMETHASONE
  14. DOCUSATE [Concomitant]
     Active Substance: DOCUSATE
  15. VECURONIUM [Concomitant]
     Active Substance: VECURONIUM BROMIDE
  16. LORAZEPAM. [Concomitant]
     Active Substance: LORAZEPAM
  17. PHENYLEPHRINE [Concomitant]
     Active Substance: PHENYLEPHRINE\PHENYLEPHRINE HYDROCHLORIDE
  18. MORPHINE [Concomitant]
     Active Substance: MORPHINE
  19. CALCIUM ACETATE. [Concomitant]
     Active Substance: CALCIUM ACETATE

REACTIONS (11)
  - Sepsis [Fatal]
  - Hypothermia [None]
  - Haemorrhage [None]
  - Drug ineffective [Fatal]
  - Bacteraemia [Fatal]
  - Acute kidney injury [None]
  - Condition aggravated [None]
  - Continuous haemodiafiltration [None]
  - Jejunal ulcer [None]
  - Escherichia test positive [None]
  - Acinetobacter test positive [None]
